FAERS Safety Report 5921527-7 (Version None)
Quarter: 2008Q4

REPORT INFORMATION
  Report Type: 
  Country: None (occurrence: None)
  Receive Date: 20081017
  Receipt Date: 20081008
  Transmission Date: 20090506
  Serious: Yes (Other)
  Sender: FDA-Public Use
  Company Number: GB-JNJFOC-20081001698

PATIENT
  Sex: Male

DRUGS (4)
  1. REMICADE [Suspect]
     Indication: VASCULITIS
     Route: 042
  2. METHOTREXATE SODIUM [Concomitant]
  3. STEROIDS [Concomitant]
  4. PREDNISOLONE [Concomitant]

REACTIONS (7)
  - DEEP VEIN THROMBOSIS [None]
  - EYE SWELLING [None]
  - FLUSHING [None]
  - NEPHROPATHY [None]
  - PYREXIA [None]
  - SINUSITIS [None]
  - SOFT TISSUE INFECTION [None]
